FAERS Safety Report 18744137 (Version 2)
Quarter: 2021Q1

REPORT INFORMATION
  Report Type: Report from Study
  Country: None (occurrence: DE)
  Receive Date: 20210114
  Receipt Date: 20210118
  Transmission Date: 20210419
  Serious: Yes (Other)
  Sender: FDA-Public Use
  Company Number: DE-ABBVIE-20K-062-3691359-00

PATIENT
  Age: 54 Year
  Sex: Female
  Weight: 62 kg

DRUGS (3)
  1. RINVOQ [Suspect]
     Active Substance: UPADACITINIB
     Route: 048
     Dates: start: 20201203
  2. RINVOQ [Suspect]
     Active Substance: UPADACITINIB
     Indication: RHEUMATOID ARTHRITIS
     Route: 048
     Dates: start: 202008, end: 20201021
  3. RINVOQ [Suspect]
     Active Substance: UPADACITINIB
     Route: 048
     Dates: start: 20201121, end: 2020

REACTIONS (3)
  - Pruritus [Recovered/Resolved]
  - Decreased appetite [Recovering/Resolving]
  - Coronavirus infection [Recovered/Resolved]

NARRATIVE: CASE EVENT DATE: 20201017
